FAERS Safety Report 11905806 (Version 1)
Quarter: 2016Q1

REPORT INFORMATION
  Report Type: Spontaneous
  Country: US (occurrence: None)
  Receive Date: 20160108
  Receipt Date: 20160108
  Transmission Date: 20160526
  Serious: Yes (Death)
  Sender: FDA-Public Use
  Company Number: None

PATIENT
  Age: 57 Year
  Sex: Male

DRUGS (1)
  1. NEXAVAR [Suspect]
     Active Substance: SORAFENIB
     Indication: HEPATIC CANCER
     Dosage: 400MG (2-200 MG TABLETS)?TWICE DAILY?ORAL
     Route: 048
     Dates: start: 20151202, end: 20151222

REACTIONS (1)
  - Death [None]

NARRATIVE: CASE EVENT DATE: 20151222
